FAERS Safety Report 25660352 (Version 1)
Quarter: 2025Q3

REPORT INFORMATION
  Report Type: Spontaneous
  Country: US (occurrence: US)
  Receive Date: 20250808
  Receipt Date: 20250808
  Transmission Date: 20251021
  Serious: No
  Sender: GALDERMA
  Company Number: US-GALDERMA-US2025012970

PATIENT

DRUGS (1)
  1. NEMLUVIO [Suspect]
     Active Substance: NEMOLIZUMAB-ILTO
     Indication: Neurodermatitis
     Route: 058

REACTIONS (6)
  - Urticaria [Recovering/Resolving]
  - Swelling [Unknown]
  - Weight increased [Unknown]
  - Skin tightness [Unknown]
  - Eosinophilia [Unknown]
  - Skin discolouration [Unknown]
